FAERS Safety Report 5943416-4 (Version None)
Quarter: 2008Q4

REPORT INFORMATION
  Report Type: 
  Country: None (occurrence: None)
  Receive Date: 20081105
  Receipt Date: 20081105
  Transmission Date: 20090506
  Serious: No
  Sender: FDA-Public Use
  Company Number: None

PATIENT
  Age: 44 Year
  Sex: Female
  Weight: 130.1823 kg

DRUGS (2)
  1. METHADOSE [Suspect]
     Indication: PAIN
     Dates: start: 20050312, end: 20060812
  2. METHADOSE [Suspect]
     Dates: start: 20060812, end: 20081028

REACTIONS (9)
  - BEDRIDDEN [None]
  - BLOOD URINE PRESENT [None]
  - CHILD NEGLECT [None]
  - FAMILY STRESS [None]
  - IMPAIRED SELF-CARE [None]
  - LUNG DISORDER [None]
  - MALAISE [None]
  - PAIN [None]
  - RENAL NEOPLASM [None]
